FAERS Safety Report 20064642 (Version 1)
Quarter: 2021Q4

REPORT INFORMATION
  Report Type: Spontaneous
  Country: DE (occurrence: DE)
  Receive Date: 20211112
  Receipt Date: 20211112
  Transmission Date: 20220303
  Serious: Yes (Death, Hospitalization, Other)
  Sender: FDA-Public Use
  Company Number: DE-SANOFI-00846358

PATIENT

DRUGS (3)
  1. LIBTAYO [Suspect]
     Active Substance: CEMIPLIMAB-RWLC
     Indication: Product used for unknown indication
     Dosage: 350 MG, Q3W
     Route: 042
     Dates: start: 20210618, end: 20210618
  2. LIBTAYO [Suspect]
     Active Substance: CEMIPLIMAB-RWLC
     Dosage: 350 MG, Q3W
     Route: 042
     Dates: start: 20210709, end: 20210709
  3. LIBTAYO [Suspect]
     Active Substance: CEMIPLIMAB-RWLC
     Dosage: 350 MG, Q3W
     Route: 042
     Dates: start: 20210730, end: 20210730

REACTIONS (4)
  - Arterial haemorrhage [Fatal]
  - Psychomotor hyperactivity [Unknown]
  - Neoplasm [Unknown]
  - Pain [Unknown]

NARRATIVE: CASE EVENT DATE: 20210822
